FAERS Safety Report 9797652 (Version 1)
Quarter: 2014Q1

REPORT INFORMATION
  Report Type: Spontaneous
  Country: US (occurrence: US)
  Receive Date: 20140106
  Receipt Date: 20140106
  Transmission Date: 20141002
  Serious: No
  Sender: FDA-Public Use
  Company Number: US-PFIZER INC-2014001217

PATIENT
  Age: 54 Year
  Sex: Female

DRUGS (7)
  1. CELEBREX [Suspect]
     Dosage: 200 MG, DAILY
     Route: 048
  2. CELEBREX [Suspect]
     Dosage: 200 MG, 2X/DAY
     Route: 048
  3. HYDROCHLOROTHIAZIDE [Suspect]
     Dosage: UNK
  4. SOMA [Suspect]
     Dosage: UNK
  5. NORCO [Suspect]
     Dosage: UNK
  6. CYMBALTA [Suspect]
     Dosage: UNK
  7. CLONIDINE [Suspect]
     Dosage: UNK

REACTIONS (1)
  - Drug hypersensitivity [Unknown]
